FAERS Safety Report 8599588-9 (Version None)
Quarter: 2012Q3

REPORT INFORMATION
  Report Type: 
  Country: None (occurrence: None)
  Receive Date: 20120816
  Receipt Date: 20120807
  Transmission Date: 20120928
  Serious: Yes (Death)
  Sender: FDA-Public Use
  Company Number: US-ACTELION-A-US2012-69272

PATIENT
  Age: 66 Year
  Sex: Male

DRUGS (8)
  1. EPOPROSTENOL SODIUM [Suspect]
     Dosage: 15 NG/KG, PER MIN
     Route: 042
     Dates: start: 20120515
  2. ADCIRCA [Concomitant]
  3. ASPIRIN [Concomitant]
  4. FUROSEMIDE [Concomitant]
  5. TRACLEER [Suspect]
     Indication: PULMONARY ARTERIAL HYPERTENSION
     Dosage: UNK
     Route: 048
     Dates: start: 20090113, end: 20120801
  6. SPIRONOLACTONE [Concomitant]
  7. EPOPROSTENOL SODIUM [Suspect]
     Indication: PULMONARY ARTERIAL HYPERTENSION
     Dosage: 8 NG/KG, PER MIN
     Route: 042
     Dates: start: 20120515, end: 20120801
  8. EPOPROSTENOL SODIUM [Suspect]
     Dosage: 12 NG/KG, PER MIN
     Route: 042
     Dates: start: 20120619

REACTIONS (4)
  - WEIGHT INCREASED [None]
  - FLUID OVERLOAD [None]
  - CARDIAC FAILURE CONGESTIVE [None]
  - PULMONARY HYPERTENSION [None]
